FAERS Safety Report 13137128 (Version 1)
Quarter: 2017Q1

REPORT INFORMATION
  Report Type: Spontaneous
  Country: US (occurrence: US)
  Receive Date: 20170120
  Receipt Date: 20170120
  Transmission Date: 20170428
  Serious: Yes (Death)
  Sender: FDA-Public Use
  Company Number: None

PATIENT
  Age: 92 Year
  Sex: Female

DRUGS (1)
  1. PROLIA [Suspect]
     Active Substance: DENOSUMAB
     Indication: PRODUCT USED FOR UNKNOWN INDICATION
     Dosage: Q6M
     Route: 058
     Dates: start: 20160115

REACTIONS (3)
  - Cerebrovascular accident [None]
  - Pneumonia aspiration [None]
  - Nervous system disorder [None]

NARRATIVE: CASE EVENT DATE: 20160916
